FAERS Safety Report 7998024-0 (Version None)
Quarter: 2011Q4

REPORT INFORMATION
  Report Type: 
  Country: None (occurrence: None)
  Receive Date: 20111221
  Receipt Date: 20101124
  Transmission Date: 20120403
  Serious: No
  Sender: FDA-Public Use
  Company Number: US-GLAXOSMITHKLINE-A0896396A

PATIENT
  Age: 48 Year
  Sex: Male

DRUGS (4)
  1. LIPITOR [Concomitant]
  2. MICARDIS [Concomitant]
  3. LOVAZA [Suspect]
     Indication: PRODUCT USED FOR UNKNOWN INDICATION
     Dosage: 2CAP TWICE PER DAY
     Route: 048
     Dates: start: 20091101
  4. NEXIUM [Concomitant]

REACTIONS (3)
  - PRODUCT QUALITY ISSUE [None]
  - PAROSMIA [None]
  - RETCHING [None]
